FAERS Safety Report 9948525 (Version 1)
Quarter: 2014Q1

REPORT INFORMATION
  Report Type: Report from Study
  Country: US (occurrence: US)
  Receive Date: 20140303
  Receipt Date: 20140303
  Transmission Date: 20141002
  Serious: No
  Sender: FDA-Public Use
  Company Number: US-ABBVIE-13P-163-1057188-00

PATIENT
  Age: 21 Year
  Sex: Male

DRUGS (2)
  1. HUMIRA [Suspect]
     Indication: CROHN^S DISEASE
     Dates: start: 20120817
  2. METHOTREXATE [Concomitant]
     Indication: CROHN^S DISEASE
     Dosage: WEEKLY
     Route: 050

REACTIONS (1)
  - Nasopharyngitis [Not Recovered/Not Resolved]
